FAERS Safety Report 9419195 (Version 2)
Quarter: 2013Q3

REPORT INFORMATION
  Report Type: Spontaneous
  Country: US (occurrence: None)
  Receive Date: 20130723
  Receipt Date: 20130808
  Transmission Date: 20140515
  Serious: Yes (Other)
  Sender: FDA-Public Use
  Company Number: AUR-APL-2013-06090

PATIENT
  Age: 77 Year
  Sex: Female
  Weight: 48 kg

DRUGS (5)
  1. CITALOPRAM [Suspect]
     Indication: DEPRESSION
  2. PREDNISOLONE (PREDNISOLONE) [Concomitant]
  3. CICLOSPORIN (CICLOSPORIN) [Concomitant]
  4. IRBESARTAN (IRBESARTAN) [Concomitant]
  5. DOXAZOSIN (DOXAZOSIN) [Concomitant]

REACTIONS (1)
  - Inappropriate antidiuretic hormone secretion [None]
